FAERS Safety Report 7611440-1 (Version None)
Quarter: 2011Q3

REPORT INFORMATION
  Report Type: 
  Country: None (occurrence: None)
  Receive Date: 20110715
  Receipt Date: 20110701
  Transmission Date: 20111222
  Serious: Yes (Hospitalization, Other)
  Sender: FDA-Public Use
  Company Number: US-ELI_LILLY_AND_COMPANY-US201106000505

PATIENT
  Sex: Female

DRUGS (3)
  1. FORTEO [Suspect]
     Indication: OSTEOPOROSIS
     Dosage: 20 UG, QD
     Route: 058
     Dates: start: 20091201
  2. FORTEO [Suspect]
     Dosage: 20 UG, QD
     Route: 058
  3. COUMADIN [Concomitant]

REACTIONS (6)
  - PNEUMONIA [None]
  - DYSARTHRIA [None]
  - CONFUSIONAL STATE [None]
  - HEART RATE IRREGULAR [None]
  - CEREBRAL HAEMORRHAGE [None]
  - FALL [None]
